FAERS Safety Report 9821324 (Version 1)
Quarter: 2013Q4

REPORT INFORMATION
  Report Type: Spontaneous
  Country: US (occurrence: None)
  Receive Date: 20131028
  Receipt Date: 20131028
  Transmission Date: 20140711
  Serious: No
  Sender: FDA-Public Use
  Company Number: 2013US001114

PATIENT
  Age: 46 Year
  Sex: Female
  Weight: 84 kg

DRUGS (4)
  1. ICLUSIG [Suspect]
     Indication: CHRONIC MYELOID LEUKAEMIA
     Dosage: 45 MG, QD, ORAL
     Route: 048
     Dates: start: 20130205
  2. METFORMIN (METFORMIN) [Concomitant]
  3. GLIPIZIDE (GLIPIZIDE) [Concomitant]
  4. LISINOPRIL (LISINOPRIL) [Concomitant]

REACTIONS (2)
  - Bone pain [None]
  - Back pain [None]
